FAERS Safety Report 14751109 (Version 1)
Quarter: 2018Q2

REPORT INFORMATION
  Report Type: Spontaneous
  Country: US (occurrence: US)
  Receive Date: 20180412
  Receipt Date: 20180412
  Transmission Date: 20180711
  Serious: No
  Sender: FDA-Public Use
  Company Number: US-BAYER-2018-063420

PATIENT
  Age: 72 Year
  Sex: Female
  Weight: 63.99 kg

DRUGS (1)
  1. CLARITIN-D NOS [Suspect]
     Active Substance: LORATADINE\PSEUDOEPHEDRINE SULFATE
     Dosage: 1 DF, QD
     Route: 048
     Dates: start: 20180402

REACTIONS (4)
  - Product prescribing issue [None]
  - Product use in unapproved indication [Unknown]
  - Insomnia [Unknown]
  - Product use issue [Unknown]
